FAERS Safety Report 25285421 (Version 2)
Quarter: 2025Q2

REPORT INFORMATION
  Report Type: Spontaneous
  Country: CA (occurrence: CA)
  Receive Date: 20250509
  Receipt Date: 20250620
  Transmission Date: 20250716
  Serious: Yes (Other)
  Sender: TEVA
  Company Number: CA-TEVA-VS-3327588

PATIENT
  Sex: Female

DRUGS (1)
  1. DEXTROAMPHETAMINE SULFATE [Suspect]
     Active Substance: DEXTROAMPHETAMINE SULFATE
     Indication: Attention deficit hyperactivity disorder
     Route: 065
     Dates: start: 2024

REACTIONS (4)
  - Depression [Unknown]
  - Mood altered [Unknown]
  - Sleep disorder [Unknown]
  - Anxiety [Unknown]

NARRATIVE: CASE EVENT DATE: 20250101
